FAERS Safety Report 13188466 (Version 1)
Quarter: 2017Q1

REPORT INFORMATION
  Report Type: Spontaneous
  Country: US (occurrence: US)
  Receive Date: 20170206
  Receipt Date: 20170206
  Transmission Date: 20170428
  Serious: Yes (Death)
  Sender: FDA-Public Use
  Company Number: US-DEPOMED, INC.-US-2017DEP000291

PATIENT

DRUGS (1)
  1. LAZANDA [Suspect]
     Active Substance: FENTANYL CITRATE
     Indication: THERMAL BURN
     Dosage: 1 SPRAY IN 1 NOSTRIL, 4 TIMES A DAY, AS NEEDED
     Route: 045
     Dates: start: 20160330

REACTIONS (2)
  - Product use issue [Recovered/Resolved]
  - Death [Fatal]

NARRATIVE: CASE EVENT DATE: 20160330
